FAERS Safety Report 4290346-2 (Version None)
Quarter: 2004Q1

REPORT INFORMATION
  Report Type: 
  Country: None (occurrence: None)
  Receive Date: 20040209
  Receipt Date: 20040128
  Transmission Date: 20041129
  Serious: Yes (Other)
  Sender: FDA-Public Use
  Company Number: NSADSS2002022156

PATIENT
  Age: 56 Year
  Sex: Female
  Weight: 82.7815 kg

DRUGS (4)
  1. REMICADE [Suspect]
     Indication: RHEUMATOID ARTHRITIS
     Dosage: INTRAVENOUS DRIP; SEE IMAGE
     Route: 041
     Dates: start: 20020625, end: 20020625
  2. REMICADE [Suspect]
     Indication: RHEUMATOID ARTHRITIS
     Dosage: INTRAVENOUS DRIP; SEE IMAGE
     Route: 041
     Dates: start: 20010424
  3. METHOTREXATE SODIUM [Concomitant]
  4. ALLEGRA [Concomitant]

REACTIONS (11)
  - ANXIETY [None]
  - BLOOD PRESSURE DECREASED [None]
  - CHILLS [None]
  - FATIGUE [None]
  - HEADACHE [None]
  - HYPERHIDROSIS [None]
  - LOSS OF CONSCIOUSNESS [None]
  - NAUSEA [None]
  - URINARY INCONTINENCE [None]
  - VERTIGO [None]
  - VOMITING [None]
